FAERS Safety Report 8205100-6 (Version None)
Quarter: 2012Q1

REPORT INFORMATION
  Report Type: 
  Country: None (occurrence: None)
  Receive Date: 20120313
  Receipt Date: 20120302
  Transmission Date: 20120608
  Serious: Yes (Disabling, Other)
  Sender: FDA-Public Use
  Company Number: NL-ROCHE-1023156

PATIENT
  Sex: Male

DRUGS (1)
  1. XOLAIR [Suspect]
     Indication: ASTHMA
     Dosage: DOSE: 225, LAST DOSE PRIOR TO SAE: 8 DEC 2011
     Dates: start: 20090101, end: 20111201

REACTIONS (1)
  - PSORIASIS [None]
